FAERS Safety Report 21354734 (Version 2)
Quarter: 2022Q4

REPORT INFORMATION
  Report Type: Spontaneous
  Country: CA (occurrence: CA)
  Receive Date: 20220920
  Receipt Date: 20221019
  Transmission Date: 20230113
  Serious: Yes (Hospitalization, Other)
  Sender: FDA-Public Use
  Company Number: CA-AMERICAN REGENT INC-2022002709

PATIENT
  Age: 21 Year
  Sex: Female
  Weight: 57 kg

DRUGS (1)
  1. VENOFER [Suspect]
     Active Substance: IRON SUCROSE
     Indication: Iron deficiency anaemia
     Dosage: 300 MILLIGRAM IN 250 ML0.9%, ONCE
     Route: 042
     Dates: start: 20220511, end: 20220511

REACTIONS (7)
  - Cyanosis [Recovering/Resolving]
  - Maternal exposure during pregnancy [Unknown]
  - Paraesthesia [Recovering/Resolving]
  - Urticaria [Recovered/Resolved]
  - Joint swelling [Recovering/Resolving]
  - Rash erythematous [Recovering/Resolving]
  - Peripheral swelling [Recovering/Resolving]

NARRATIVE: CASE EVENT DATE: 20220511
